FAERS Safety Report 25497607 (Version 2)
Quarter: 2025Q3

REPORT INFORMATION
  Report Type: Spontaneous
  Country: EU (occurrence: EU)
  Receive Date: 20250701
  Receipt Date: 20250819
  Transmission Date: 20251021
  Serious: Yes (Hospitalization)
  Sender: TEVA
  Company Number: None

PATIENT
  Age: 44 Year
  Sex: Male

DRUGS (1)
  1. TRAMADOL [Suspect]
     Active Substance: TRAMADOL
     Indication: Product used for unknown indication
     Route: 048
     Dates: start: 2005

REACTIONS (8)
  - Hypokalaemia [Recovered/Resolved]
  - Drug withdrawal syndrome [Recovered/Resolved]
  - Memory impairment [Unknown]
  - Respiratory disorder [Recovering/Resolving]
  - Drug abuse [Not Recovered/Not Resolved]
  - Asthenia [Recovering/Resolving]
  - Dysuria [Not Recovered/Not Resolved]
  - Cognitive disorder [Recovering/Resolving]

NARRATIVE: CASE EVENT DATE: 20050101
